FAERS Safety Report 24541048 (Version 1)
Quarter: 2024Q4

REPORT INFORMATION
  Report Type: Spontaneous
  Country: US (occurrence: None)
  Receive Date: 20241023
  Receipt Date: 20241023
  Transmission Date: 20250115
  Serious: Yes (Hospitalization)
  Sender: Public
  Company Number: None

PATIENT
  Age: 27 Year
  Sex: Male

DRUGS (1)
  1. TACROLIMUS [Suspect]
     Active Substance: TACROLIMUS
     Indication: Renal transplant
     Dosage: OTHER QUANTITY : 4MG AND 3MG ;?OTHER FREQUENCY : QAM AND QPM;?

REACTIONS (4)
  - Pneumonia [None]
  - Acute kidney injury [None]
  - Kidney transplant rejection [None]
  - Dyspnoea [None]
